FAERS Safety Report 11290917 (Version 2)
Quarter: 2015Q3

REPORT INFORMATION
  Report Type: Report from Study
  Country: FR (occurrence: FR)
  Receive Date: 20150722
  Receipt Date: 20150729
  Transmission Date: 20151125
  Serious: Yes (Hospitalization)
  Sender: FDA-Public Use
  Company Number: FR-ROCHE-1607584

PATIENT
  Age: 55 Year
  Sex: Male
  Weight: 75 kg

DRUGS (6)
  1. RITUXIMAB [Suspect]
     Active Substance: RITUXIMAB
     Indication: DIFFUSE LARGE B-CELL LYMPHOMA
     Dosage: LAST DOSE PRIOR TO SAE 26/JUN/2015
     Route: 042
     Dates: start: 20150529
  2. VINDESINE [Concomitant]
     Active Substance: VINDESINE
     Indication: DIFFUSE LARGE B-CELL LYMPHOMA
     Route: 065
     Dates: start: 20150529
  3. DOXORUBICIN [Concomitant]
     Active Substance: DOXORUBICIN
     Indication: DIFFUSE LARGE B-CELL LYMPHOMA
     Route: 065
     Dates: start: 20150529
  4. BLEOMYCIN [Concomitant]
     Active Substance: BLEOMYCIN SULFATE
     Indication: DIFFUSE LARGE B-CELL LYMPHOMA
     Route: 065
     Dates: start: 20150529
  5. CYCLOPHOSPHAMIDE. [Concomitant]
     Active Substance: CYCLOPHOSPHAMIDE
     Indication: DIFFUSE LARGE B-CELL LYMPHOMA
     Route: 065
     Dates: start: 20150529
  6. PREDNISONE. [Concomitant]
     Active Substance: PREDNISONE
     Indication: DIFFUSE LARGE B-CELL LYMPHOMA
     Route: 065
     Dates: start: 20150529

REACTIONS (1)
  - Stomatitis [Recovered/Resolved]

NARRATIVE: CASE EVENT DATE: 20150709
